FAERS Safety Report 7813973-1 (Version None)
Quarter: 2011Q4

REPORT INFORMATION
  Report Type: 
  Country: None (occurrence: None)
  Receive Date: 20111014
  Receipt Date: 20110930
  Transmission Date: 20120403
  Serious: Yes (Other)
  Sender: FDA-Public Use
  Company Number: BR-JNJFOC-20111001255

PATIENT
  Sex: Male
  Weight: 9.8 kg

DRUGS (2)
  1. ACETAMINOPHEN [Suspect]
     Indication: PAIN
     Route: 048
     Dates: start: 20110101
  2. ACETAMINOPHEN [Suspect]
     Route: 048

REACTIONS (1)
  - HYPERSOMNIA [None]
